FAERS Safety Report 5888836-1 (Version None)
Quarter: 2008Q3

REPORT INFORMATION
  Report Type: 
  Country: None (occurrence: None)
  Receive Date: 20080919
  Receipt Date: 20080618
  Transmission Date: 20090109
  Serious: No
  Sender: FDA-Public Use
  Company Number: A0734623A

PATIENT
  Age: 57 Year
  Sex: Male

DRUGS (8)
  1. AVANDARYL [Suspect]
     Indication: DRUG USE FOR UNKNOWN INDICATION
     Route: 048
  2. LANTUS [Concomitant]
  3. METFORMIN HCL [Concomitant]
  4. VYTORIN [Concomitant]
  5. UNIRETIC [Concomitant]
  6. VERAPAMIL [Concomitant]
  7. METRONIDAZOLE [Concomitant]
  8. LEVAQUIN [Concomitant]

REACTIONS (1)
  - ABDOMINAL PAIN UPPER [None]
